FAERS Safety Report 6984403-7 (Version None)
Quarter: 2010Q3

REPORT INFORMATION
  Report Type: 
  Country: None (occurrence: None)
  Receive Date: 20100915
  Receipt Date: 20100906
  Transmission Date: 20110219
  Serious: Yes (Other)
  Sender: FDA-Public Use
  Company Number: US-BAYER-201038630GPV

PATIENT
  Age: 49 Year
  Sex: Female

DRUGS (4)
  1. DACARBAZINE [Suspect]
     Indication: HODGKIN'S DISEASE
     Dosage: SIX CYCLES
  2. DOXORUBICIN HCL [Suspect]
     Indication: HODGKIN'S DISEASE
     Dosage: SIX CYCLES
  3. BLEOMYCIN SULFATE [Suspect]
     Indication: HODGKIN'S DISEASE
     Dosage: SIX CYCLES
  4. VINBLASTINE [Suspect]
     Indication: HODGKIN'S DISEASE
     Dosage: SIX CYCLES

REACTIONS (2)
  - LYMPHOPENIA [None]
  - SARCOIDOSIS [None]
